FAERS Safety Report 21062213 (Version 1)
Quarter: 2022Q3

REPORT INFORMATION
  Report Type: Spontaneous
  Country: CA (occurrence: CA)
  Receive Date: 20220711
  Receipt Date: 20220711
  Transmission Date: 20221026
  Serious: Yes (Death, Other)
  Sender: FDA-Public Use
  Company Number: CA-AMGEN-CANSP2022112062

PATIENT
  Age: 77 Year
  Sex: Male

DRUGS (14)
  1. INFLIXIMAB [Suspect]
     Active Substance: INFLIXIMAB
     Indication: Inflammatory bowel disease
     Dosage: 5 MILLIGRAM/KG
     Route: 042
  2. INFLIXIMAB [Suspect]
     Active Substance: INFLIXIMAB
     Indication: Enterocolitis
     Dosage: 5 MILLIGRAM/KG
     Route: 042
  3. CARBIDOPA\LEVODOPA [Concomitant]
     Active Substance: CARBIDOPA\LEVODOPA
     Dosage: 50 MILLIGRAM (12.5 MG), BID
     Route: 048
  4. CARBIDOPA\LEVODOPA [Concomitant]
     Active Substance: CARBIDOPA\LEVODOPA
     Dosage: 200 MILLIGRAM (50 MG), TID
     Route: 048
  5. CANDESARTAN [Concomitant]
     Active Substance: CANDESARTAN
     Route: 048
  6. METFORMIN [Concomitant]
     Active Substance: METFORMIN HYDROCHLORIDE
     Route: 048
  7. LEVOTHYROXINE [Concomitant]
     Active Substance: LEVOTHYROXINE
     Route: 048
  8. ATORVASTATIN [Concomitant]
     Active Substance: ATORVASTATIN
  9. SENNOSIDES [Concomitant]
     Active Substance: SENNOSIDES
  10. ASPIRIN [Concomitant]
     Active Substance: ASPIRIN
     Route: 048
  11. POLYETHYLENE GLYCOL [Concomitant]
     Active Substance: POLYETHYLENE GLYCOL
     Route: 048
  12. DUTASTERIDE [Concomitant]
     Active Substance: DUTASTERIDE
     Route: 048
  13. METHYLPREDNISOLONE [Concomitant]
     Active Substance: METHYLPREDNISOLONE
     Route: 065
  14. LOPERAMIDE [Concomitant]
     Active Substance: LOPERAMIDE
     Dosage: 4 MILLIGRAM, QD

REACTIONS (4)
  - COVID-19 [Fatal]
  - Cytomegalovirus infection [Unknown]
  - Therapy non-responder [Unknown]
  - Off label use [Unknown]
